FAERS Safety Report 7026339-1 (Version None)
Quarter: 2010Q4

REPORT INFORMATION
  Report Type: 
  Country: None (occurrence: None)
  Receive Date: 20101004
  Receipt Date: 20100922
  Transmission Date: 20110411
  Serious: Yes (Other)
  Sender: FDA-Public Use
  Company Number: GB-PFIZER INC-2010120660

PATIENT
  Age: 84 Year
  Sex: Female

DRUGS (1)
  1. SALAZOPYRIN [Suspect]
     Dosage: 500 MG, 3X/DAY

REACTIONS (2)
  - FACIAL PAIN [None]
  - NECK PAIN [None]
